FAERS Safety Report 9352084 (Version 3)
Quarter: 2013Q4

REPORT INFORMATION
  Report Type: Spontaneous
  Country: US (occurrence: US)
  Receive Date: 20130617
  Receipt Date: 20131126
  Transmission Date: 20140711
  Serious: Yes (Disabling, Other)
  Sender: FDA-Public Use
  Company Number: US-GILEAD-2013-0076867

PATIENT
  Age: 30 Year
  Sex: Male
  Weight: 65.31 kg

DRUGS (6)
  1. STRIBILD [Suspect]
     Indication: ACQUIRED IMMUNODEFICIENCY SYNDROME
     Dosage: 1 DF, QD
     Route: 048
     Dates: start: 20120901
  2. ADVAIR [Suspect]
     Indication: ASTHMA
     Dosage: UNK, QD
     Route: 055
     Dates: start: 20120801, end: 20130530
  3. COSYNTROPIN [Concomitant]
  4. HYDROCORTISONE [Concomitant]
     Dosage: 20 MG, QD
     Route: 048
  5. HYDROCORTISONE [Concomitant]
     Dosage: 10 MG, QD
     Route: 048
  6. BECLOMETHASONE                     /00212602/ [Concomitant]
     Dosage: UNK, BID

REACTIONS (2)
  - Adrenal insufficiency [Recovering/Resolving]
  - Presyncope [Unknown]
